FAERS Safety Report 8073747-6 (Version None)
Quarter: 2012Q1

REPORT INFORMATION
  Report Type: 
  Country: None (occurrence: None)
  Receive Date: 20120126
  Receipt Date: 20120124
  Transmission Date: 20120608
  Serious: Yes (Death)
  Sender: FDA-Public Use
  Company Number: IL-B.I. PHARMACEUTICALS,INC./RIDGEFIELD-2012-AP-00051RI

PATIENT
  Age: 74 Year
  Sex: Male

DRUGS (3)
  1. PLAVIX [Concomitant]
  2. PRADAXA [Suspect]
     Dosage: 220 MG
  3. PROSCAR [Concomitant]

REACTIONS (1)
  - HAEMORRHAGE [None]
